FAERS Safety Report 23609456 (Version 3)
Quarter: 2024Q2

REPORT INFORMATION
  Report Type: Spontaneous
  Country: US (occurrence: None)
  Receive Date: 20240308
  Receipt Date: 20240410
  Transmission Date: 20240717
  Serious: No
  Sender: FDA-Public Use
  Company Number: 2024A043489

PATIENT
  Sex: Male

DRUGS (1)
  1. AIRSUPRA [Suspect]
     Active Substance: ALBUTEROL SULFATE\BUDESONIDE
     Indication: Chronic obstructive pulmonary disease
     Route: 055

REACTIONS (1)
  - Dyspnoea [Unknown]
